FAERS Safety Report 20673876 (Version 1)
Quarter: 2022Q2

REPORT INFORMATION
  Report Type: Spontaneous
  Country: US (occurrence: US)
  Receive Date: 20220405
  Receipt Date: 20220405
  Transmission Date: 20220721
  Serious: Yes (Death, Other)
  Sender: FDA-Public Use
  Company Number: US-SA-SAC20220401001545

PATIENT

DRUGS (1)
  1. ZANTAC [Suspect]
     Active Substance: RANITIDINE HYDROCHLORIDE
     Dosage: UNK
     Dates: start: 201702, end: 201911

REACTIONS (7)
  - Pancreatic carcinoma [Fatal]
  - Injury [Fatal]
  - Pain [Fatal]
  - Anxiety [Fatal]
  - Deformity [Fatal]
  - Emotional distress [Fatal]
  - Discomfort [Fatal]

NARRATIVE: CASE EVENT DATE: 20191101
